FAERS Safety Report 6617520-1 (Version None)
Quarter: 2010Q1

REPORT INFORMATION
  Report Type: 
  Country: None (occurrence: None)
  Receive Date: 20100308
  Receipt Date: 20100225
  Transmission Date: 20100710
  Serious: Yes (Disabling)
  Sender: FDA-Public Use
  Company Number: RU-ASTRAZENECA-2010SE08255

PATIENT
  Age: 20 Year
  Sex: Female

DRUGS (1)
  1. NAROPIN [Suspect]
     Indication: POSTOPERATIVE ANALGESIA
     Route: 008
     Dates: start: 20100217

REACTIONS (1)
  - PARAPLEGIA [None]
